FAERS Safety Report 4528957-9 (Version None)
Quarter: 2004Q4

REPORT INFORMATION
  Report Type: 
  Country: None (occurrence: None)
  Receive Date: 20041214
  Receipt Date: 20041117
  Transmission Date: 20050328
  Serious: Yes (Death)
  Sender: FDA-Public Use
  Company Number: WAES 0411USA03492

PATIENT
  Age: 75 Year
  Sex: Female

DRUGS (1)
  1. COZAAR [Suspect]
     Indication: HYPERTENSION
     Dosage: 25 MG DAILY; PO
     Route: 048
     Dates: start: 20001117, end: 20040216

REACTIONS (1)
  - BILE DUCT CANCER [None]
